FAERS Safety Report 25903571 (Version 1)
Quarter: 2025Q4

REPORT INFORMATION
  Report Type: Spontaneous
  Country: CN (occurrence: CN)
  Receive Date: 20251010
  Receipt Date: 20251010
  Transmission Date: 20260117
  Serious: Yes (Other)
  Sender: HISUN PHARMACEUTICALS USA INC
  Company Number: CN-Hisun Pharmaceuticals USA Inc.-000756

PATIENT
  Age: 47 Year
  Sex: Male
  Weight: 65 kg

DRUGS (6)
  1. CLADRIBINE [Suspect]
     Active Substance: CLADRIBINE
     Indication: Plasma cell myeloma
     Route: 042
     Dates: start: 20250601, end: 20250603
  2. CYCLOPHOSPHAMIDE [Suspect]
     Active Substance: CYCLOPHOSPHAMIDE
     Indication: Plasma cell myeloma
     Route: 042
     Dates: start: 20250601, end: 20250605
  3. MITOXANTRONE HYDROCHLORIDE [Suspect]
     Active Substance: MITOXANTRONE HYDROCHLORIDE
     Indication: Plasma cell myeloma
     Route: 042
     Dates: start: 20250601, end: 20250605
  4. CYTARABINE [Suspect]
     Active Substance: CYTARABINE
     Indication: Plasma cell myeloma
     Route: 042
     Dates: start: 20250601, end: 20250605
  5. MESNA [Concomitant]
     Active Substance: MESNA
     Indication: Cystitis haemorrhagic
     Route: 042
     Dates: start: 20250601, end: 20250605
  6. SODIUM CHLORIDE [Concomitant]
     Active Substance: SODIUM CHLORIDE
     Indication: Product used for unknown indication
     Dates: start: 20250601, end: 20250605

REACTIONS (4)
  - Myelosuppression [Recovering/Resolving]
  - Febrile neutropenia [Recovering/Resolving]
  - Palpitations [Recovering/Resolving]
  - Product use in unapproved indication [Unknown]

NARRATIVE: CASE EVENT DATE: 20250601
